FAERS Safety Report 10427326 (Version 1)
Quarter: 2014Q3

REPORT INFORMATION
  Report Type: Report from Study
  Country: US (occurrence: US)
  Receive Date: 20140903
  Receipt Date: 20140903
  Transmission Date: 20150326
  Serious: Yes (Life-Threatening, Hospitalization)
  Sender: FDA-Public Use
  Company Number: PHHY2014US108251

PATIENT
  Age: 59 Year
  Sex: Female

DRUGS (41)
  1. LEUCOVORIN [Suspect]
     Active Substance: LEUCOVORIN
     Indication: COLON CANCER
     Dosage: 584 MG, QW2
     Route: 042
     Dates: start: 20130531
  2. ACYCLOVIR. [Concomitant]
     Active Substance: ACYCLOVIR
     Indication: SKIN INFECTION
     Dosage: 800 MG, UNK
     Route: 048
     Dates: start: 20130531
  3. PALONOSETRON [Concomitant]
     Active Substance: PALONOSETRON
     Indication: PREMEDICATION
     Dosage: 025 MG, UNK
     Route: 042
     Dates: start: 20130531
  4. PHENOL. [Concomitant]
     Active Substance: PHENOL
     Indication: OESOPHAGEAL CANDIDIASIS
     Dosage: 1.4 %, UNK
     Route: 061
     Dates: start: 20130812, end: 20130812
  5. LEUCOVORIN [Suspect]
     Active Substance: LEUCOVORIN
     Dosage: 592 MG, QW2
     Route: 042
     Dates: end: 20130809
  6. LOPERAMIDE [Concomitant]
     Active Substance: LOPERAMIDE
     Dosage: 2 MG, QID FOUR TIMES A DAY AS REQUIRED
     Route: 048
     Dates: start: 20130531
  7. POTASSIUM CHLORIDE. [Concomitant]
     Active Substance: POTASSIUM CHLORIDE
     Dosage: 40 MEQ, UNK
     Route: 048
     Dates: start: 20130728, end: 20130731
  8. ATROPINE [Concomitant]
     Active Substance: ATROPINE
     Indication: SEPTIC SHOCK
     Dosage: 0.025 MG, UNK
     Route: 048
     Dates: start: 20130813, end: 20130813
  9. CALCIUM CARBONATE. [Concomitant]
     Active Substance: CALCIUM CARBONATE
     Indication: GASTROOESOPHAGEAL REFLUX DISEASE
     Dosage: 500 MG, UNK
     Route: 048
     Dates: start: 20130603
  10. ONDANSETRON [Concomitant]
     Active Substance: ONDANSETRON
     Indication: NAUSEA
     Dosage: 4 MG, UNK
     Route: 048
     Dates: start: 20130227
  11. 5-FLUOROURACIL [Suspect]
     Active Substance: FLUOROURACIL
     Dosage: 2960 MG, QW2
     Route: 042
     Dates: end: 20130809
  12. LOPERAMIDE [Concomitant]
     Active Substance: LOPERAMIDE
     Indication: DIARRHOEA
     Dosage: 4 MG, UNK
     Route: 048
     Dates: start: 20130531
  13. POTASSIUM CHLORIDE. [Concomitant]
     Active Substance: POTASSIUM CHLORIDE
     Indication: HYPOKALAEMIA
     Dosage: 20 MEQ, BID
  14. ATROPINE [Concomitant]
     Active Substance: ATROPINE
     Indication: PREMEDICATION
     Dosage: 0.5 MG, UNK
     Route: 042
     Dates: start: 20130531
  15. ATROPINE [Concomitant]
     Active Substance: ATROPINE
  16. DEXAMETHASONE. [Concomitant]
     Active Substance: DEXAMETHASONE
     Indication: PREMEDICATION
     Dosage: 10 MG, UNK
     Route: 042
     Dates: start: 20130531
  17. LIDOCAINE/PRILOCAINE [Concomitant]
     Indication: PROPHYLAXIS
     Dosage: 1 DF, UNK
     Route: 061
  18. HYDROMORPHONE [Concomitant]
     Active Substance: HYDROMORPHONE
     Indication: ABDOMINAL PAIN
     Dosage: 0.25 MG, UNK
     Route: 042
     Dates: start: 20130814, end: 20130816
  19. ACYCLOVIR. [Concomitant]
     Active Substance: ACYCLOVIR
     Indication: HERPES ZOSTER
     Dosage: 1000 MG, UNK
     Route: 048
     Dates: start: 20130531
  20. PROCHLORPERAZINE. [Concomitant]
     Active Substance: PROCHLORPERAZINE
     Indication: NAUSEA
     Dosage: 10 MG, UNK
     Route: 048
     Dates: start: 20130608
  21. PROCHLORPERAZINE. [Concomitant]
     Active Substance: PROCHLORPERAZINE
     Indication: VOMITING
  22. LORAZEPAM. [Concomitant]
     Active Substance: LORAZEPAM
     Indication: NAUSEA
     Dosage: 0.5 MG, UNK
     Route: 048
     Dates: start: 20130605
  23. OMEPRAZOLE. [Concomitant]
     Active Substance: OMEPRAZOLE
     Indication: GASTROOESOPHAGEAL REFLUX DISEASE
     Dosage: 20 MG, UNK
     Route: 048
     Dates: start: 20130610
  24. MICAFUNGIN [Concomitant]
     Active Substance: MICAFUNGIN
     Indication: OESOPHAGEAL CANDIDIASIS
     Dosage: 100 MG, UNK
     Route: 042
     Dates: start: 20130812, end: 20130815
  25. GUAR GUM [Concomitant]
     Active Substance: GUAR GUM
     Dosage: 4 G, UNK
     Route: 048
     Dates: start: 20130813, end: 20130816
  26. 5-FLUOROURACIL [Suspect]
     Active Substance: FLUOROURACIL
     Indication: COLON CANCER
     Dosage: 2300 MG, QW2
     Route: 042
     Dates: start: 20130531
  27. ZOFRAN [Concomitant]
     Active Substance: ONDANSETRON HYDROCHLORIDE
  28. LORAZEPAM. [Concomitant]
     Active Substance: LORAZEPAM
     Indication: VOMITING
  29. ZOLPIDEM [Concomitant]
     Active Substance: ZOLPIDEM\ZOLPIDEM TARTRATE
     Indication: INSOMNIA
     Dosage: 2.5 MG, UNK
     Route: 048
     Dates: start: 20130812, end: 20130816
  30. HYDROCORTISONE. [Concomitant]
     Active Substance: HYDROCORTISONE
     Indication: ADRENAL INSUFFICIENCY
     Dosage: 100 MG, UNK
     Route: 042
     Dates: start: 20130812, end: 20130812
  31. LOMOTIL [Concomitant]
     Active Substance: ATROPINE SULFATE\DIPHENOXYLATE HYDROCHLORIDE
     Indication: DIARRHOEA
     Dosage: 2.5 MG,1 IN 1 AS REQUIRED
     Route: 048
     Dates: start: 20130610
  32. OXYCODONE [Concomitant]
     Active Substance: OXYCODONE
     Indication: ABDOMINAL PAIN
     Dosage: 5 MG, UNK
     Route: 048
     Dates: start: 20130313
  33. NYSTATIN. [Concomitant]
     Active Substance: NYSTATIN
     Indication: OESOPHAGEAL CANDIDIASIS
     Dosage: 500000 IU, UNK
     Route: 048
     Dates: start: 20130812, end: 20130816
  34. ADVIL [Concomitant]
     Active Substance: IBUPROFEN
     Dates: start: 20130726
  35. RESTORIL [Concomitant]
     Active Substance: TEMAZEPAM
     Indication: INSOMNIA
     Dosage: 15 MG, UNK
     Route: 048
     Dates: start: 20130403
  36. IRINOTECAN [Suspect]
     Active Substance: IRINOTECAN
     Indication: COLON CANCER
     Dosage: 175 MG, QW2
     Route: 042
     Dates: start: 20130531
  37. IRINOTECAN [Suspect]
     Active Substance: IRINOTECAN
     Dosage: 222 MG, QW2
     Route: 042
     Dates: end: 20130809
  38. POTASSIUM CHLORIDE. [Concomitant]
     Active Substance: POTASSIUM CHLORIDE
     Dosage: 40 MEQ, UNK
     Route: 048
     Dates: start: 20130813, end: 20130813
  39. FOSAPREPITANT [Concomitant]
     Active Substance: FOSAPREPITANT
     Indication: NAUSEA
     Dosage: 150 MG, UNK
     Route: 042
     Dates: start: 20130618
  40. VICODIN [Concomitant]
     Active Substance: ACETAMINOPHEN\HYDROCODONE BITARTRATE
     Indication: ABDOMINAL PAIN
     Dosage: 1-2 TABLETS EVERY 4 HOURS AS REQUIRED
     Route: 048
     Dates: start: 20130227
  41. COSYNTROPIN. [Concomitant]
     Active Substance: COSYNTROPIN
     Dosage: 0.25 MG, UNK
     Route: 042
     Dates: start: 20130811, end: 20130811

REACTIONS (1)
  - Septic shock [Recovered/Resolved with Sequelae]

NARRATIVE: CASE EVENT DATE: 20130715
